FAERS Safety Report 11068393 (Version 1)
Quarter: 2015Q2

REPORT INFORMATION
  Report Type: Spontaneous
  Country: CN (occurrence: CN)
  Receive Date: 20150427
  Receipt Date: 20150427
  Transmission Date: 20150821
  Serious: Yes (Other)
  Sender: FDA-Public Use
  Company Number: CN-PFIZER INC-2015142880

PATIENT
  Age: 78 Year
  Sex: Female

DRUGS (1)
  1. CORDARONE [Suspect]
     Active Substance: AMIODARONE HYDROCHLORIDE
     Indication: ARRHYTHMIA
     Dosage: 200 MG, 4X/DAY
     Route: 048
     Dates: start: 20140916, end: 20140923

REACTIONS (6)
  - Eye disorder [Unknown]
  - Nausea [Unknown]
  - Lacunar infarction [Unknown]
  - Encephalopathy [Unknown]
  - Blood pressure increased [Unknown]
  - Dizziness [Unknown]

NARRATIVE: CASE EVENT DATE: 20140923
